FAERS Safety Report 15487852 (Version 3)
Quarter: 2018Q4

REPORT INFORMATION
  Report Type: Spontaneous
  Country: US (occurrence: US)
  Receive Date: 20181011
  Receipt Date: 20181107
  Transmission Date: 20190205
  Serious: No
  Sender: FDA-Public Use
  Company Number: US-009507513-1809USA012483

PATIENT
  Age: 57 Year
  Sex: Male

DRUGS (20)
  1. DULERA [Suspect]
     Active Substance: FORMOTEROL FUMARATE DIHYDRATE\MOMETASONE FUROATE
     Indication: ASTHMA
     Dosage: 2 TIMES IN THE AM AND TWO TIME BEFORE BED
     Route: 055
  2. DULERA [Suspect]
     Active Substance: FORMOTEROL FUMARATE DIHYDRATE\MOMETASONE FUROATE
     Dosage: 2 TIMES IN THE AM AND TWO TIME BEFORE BED
     Route: 055
  3. DULERA [Suspect]
     Active Substance: FORMOTEROL FUMARATE DIHYDRATE\MOMETASONE FUROATE
     Dosage: 2 TIMES IN THE AM AND TWO TIME BEFORE BED
     Route: 055
  4. DULERA [Suspect]
     Active Substance: FORMOTEROL FUMARATE DIHYDRATE\MOMETASONE FUROATE
     Dosage: 2 TIMES IN THE AM AND TWO TIME BEFORE BED
     Route: 055
  5. DULERA [Suspect]
     Active Substance: FORMOTEROL FUMARATE DIHYDRATE\MOMETASONE FUROATE
     Dosage: 2 TIMES IN THE AM AND TWO TIME BEFORE BED
     Route: 055
  6. DULERA [Suspect]
     Active Substance: FORMOTEROL FUMARATE DIHYDRATE\MOMETASONE FUROATE
     Dosage: 2 TIMES IN THE AM AND TWO TIME BEFORE BED
     Route: 055
  7. DULERA [Suspect]
     Active Substance: FORMOTEROL FUMARATE DIHYDRATE\MOMETASONE FUROATE
     Dosage: 2 TIMES IN THE AM AND TWO TIME BEFORE BED
     Route: 055
  8. DULERA [Suspect]
     Active Substance: FORMOTEROL FUMARATE DIHYDRATE\MOMETASONE FUROATE
     Dosage: 2 TIMES IN THE AM AND TWO TIME BEFORE BED
     Route: 055
  9. DULERA [Suspect]
     Active Substance: FORMOTEROL FUMARATE DIHYDRATE\MOMETASONE FUROATE
     Dosage: 2 TIMES IN THE AM AND TWO TIME BEFORE BED
     Route: 055
  10. DULERA [Suspect]
     Active Substance: FORMOTEROL FUMARATE DIHYDRATE\MOMETASONE FUROATE
     Dosage: 2 TIMES IN THE AM AND TWO TIME BEFORE BED
     Route: 055
  11. DULERA [Suspect]
     Active Substance: FORMOTEROL FUMARATE DIHYDRATE\MOMETASONE FUROATE
     Dosage: 2 TIMES IN THE AM AND TWO TIME BEFORE BED
     Route: 055
  12. DULERA [Suspect]
     Active Substance: FORMOTEROL FUMARATE DIHYDRATE\MOMETASONE FUROATE
     Dosage: 2 TIMES IN THE AM AND TWO TIME BEFORE BED
     Route: 055
  13. OMEPRAZOLE. [Concomitant]
     Active Substance: OMEPRAZOLE
     Dosage: UNK
  14. DULERA [Suspect]
     Active Substance: FORMOTEROL FUMARATE DIHYDRATE\MOMETASONE FUROATE
     Dosage: 2 TIMES IN THE AM AND TWO TIME BEFORE BED
     Route: 055
  15. DULERA [Suspect]
     Active Substance: FORMOTEROL FUMARATE DIHYDRATE\MOMETASONE FUROATE
     Dosage: 2 TIMES IN THE AM AND TWO TIME BEFORE BED
     Route: 055
  16. DULERA [Suspect]
     Active Substance: FORMOTEROL FUMARATE DIHYDRATE\MOMETASONE FUROATE
     Dosage: 2 TIMES IN THE AM AND TWO TIME BEFORE BED
     Route: 055
  17. DULERA [Suspect]
     Active Substance: FORMOTEROL FUMARATE DIHYDRATE\MOMETASONE FUROATE
     Dosage: 2 TIMES IN THE AM AND TWO TIME BEFORE BED
     Route: 055
  18. DULERA [Suspect]
     Active Substance: FORMOTEROL FUMARATE DIHYDRATE\MOMETASONE FUROATE
     Dosage: 2 TIMES IN THE AM AND TWO TIME BEFORE BED
     Route: 055
  19. DULERA [Suspect]
     Active Substance: FORMOTEROL FUMARATE DIHYDRATE\MOMETASONE FUROATE
     Dosage: 2 TIMES IN THE AM AND TWO TIME BEFORE BED
     Route: 055
  20. DULERA [Suspect]
     Active Substance: FORMOTEROL FUMARATE DIHYDRATE\MOMETASONE FUROATE
     Dosage: 2 TIMES IN THE AM AND TWO TIME BEFORE BED
     Route: 055

REACTIONS (3)
  - Chest discomfort [Recovered/Resolved]
  - Product quality issue [Unknown]
  - Underdose [Unknown]

NARRATIVE: CASE EVENT DATE: 2017
